FAERS Safety Report 6992700-4 (Version None)
Quarter: 2010Q3

REPORT INFORMATION
  Report Type: 
  Country: None (occurrence: None)
  Receive Date: 20100917
  Receipt Date: 20100910
  Transmission Date: 20110219
  Serious: Yes (Other)
  Sender: FDA-Public Use
  Company Number: DE-MERCK-1009DEU00045

PATIENT
  Age: 78 Year
  Sex: Female

DRUGS (2)
  1. FOSAMAX [Suspect]
     Route: 048
     Dates: start: 20020101
  2. CALCIUM CARBONATE AND CHOLECALCIFEROL [Concomitant]
     Route: 048

REACTIONS (1)
  - SPINAL FRACTURE [None]
